FAERS Safety Report 7287714-3 (Version None)
Quarter: 2011Q1

REPORT INFORMATION
  Report Type: 
  Country: None (occurrence: None)
  Receive Date: 20110211
  Receipt Date: 20101115
  Transmission Date: 20110831
  Serious: No
  Sender: FDA-Public Use
  Company Number: US-BAYER-2010-005561

PATIENT
  Sex: Female

DRUGS (1)
  1. MIRENA [Suspect]
     Indication: MENSTRUAL DISORDER
     Dosage: DAILY DOSE 20 MCG/ML
     Route: 015
     Dates: start: 20101027, end: 20101111

REACTIONS (1)
  - DEVICE EXPULSION [None]
